FAERS Safety Report 5993183-3 (Version None)
Quarter: 2008Q4

REPORT INFORMATION
  Report Type: 
  Country: None (occurrence: None)
  Receive Date: 20081212
  Receipt Date: 20081205
  Transmission Date: 20090506
  Serious: No
  Sender: FDA-Public Use
  Company Number: US-JNJFOC-20081202359

PATIENT
  Sex: Female
  Weight: 81.65 kg

DRUGS (9)
  1. DURAGESIC-100 [Suspect]
     Indication: INTERVERTEBRAL DISC DISORDER
     Route: 062
  2. LORTAB [Concomitant]
     Indication: PAIN
     Dosage: 10/500 MG
     Route: 048
  3. PERCOCET [Concomitant]
     Indication: PAIN
     Route: 048
  4. NEURONTIN [Concomitant]
     Indication: NEURALGIA
     Route: 048
  5. MOTRIN [Concomitant]
     Indication: ANTIINFLAMMATORY THERAPY
     Route: 048
  6. EFFEXOR [Concomitant]
     Indication: DEPRESSION
     Route: 048
  7. ATACAND [Concomitant]
     Indication: HYPERTENSION
     Route: 048
  8. METOPROLOL TARTRATE [Concomitant]
     Indication: BLOOD PRESSURE
     Route: 048
  9. HYDROCHLOROTHIAZIDE [Concomitant]
     Indication: FLUID RETENTION
     Route: 048

REACTIONS (4)
  - APPLICATION SITE RASH [None]
  - DRUG ADMINISTERED AT INAPPROPRIATE SITE [None]
  - HYPERHIDROSIS [None]
  - WRONG TECHNIQUE IN DRUG USAGE PROCESS [None]
